FAERS Safety Report 20719676 (Version 1)
Quarter: 2022Q2

REPORT INFORMATION
  Report Type: Spontaneous
  Country: GB (occurrence: GB)
  Receive Date: 20220418
  Receipt Date: 20220418
  Transmission Date: 20220720
  Serious: Yes (Other)
  Sender: FDA-Public Use
  Company Number: GB-MHRA-MED-202204041135248980-0HKBO

PATIENT
  Age: 66 Year
  Sex: Female

DRUGS (4)
  1. DALTEPARIN SODIUM [Suspect]
     Active Substance: DALTEPARIN SODIUM
     Indication: Thrombosis prophylaxis
     Dosage: 2,500 UNITS STAT SC; ;
     Route: 058
     Dates: start: 20220331, end: 20220331
  2. CYCLIZINE [Suspect]
     Active Substance: CYCLIZINE
     Indication: Procedural nausea
     Dosage: 50MG TDS PRN
     Route: 030
     Dates: start: 20220331, end: 20220331
  3. DICLOFENAC [Suspect]
     Active Substance: DICLOFENAC
     Indication: Postoperative analgesia
     Dosage: 100MG OD PRN
     Dates: start: 20220331, end: 20220331
  4. OXYCODONE [Suspect]
     Active Substance: OXYCODONE
     Indication: Postoperative analgesia
     Dosage: 100MG OVER 24 HRS WHEN REQUIRED (PATIENT CONTROLLED ANALGESIA)
     Dates: start: 20220331, end: 20220331

REACTIONS (2)
  - Anaphylactic reaction [Recovering/Resolving]
  - Hepatic function abnormal [Unknown]

NARRATIVE: CASE EVENT DATE: 20220331
